FAERS Safety Report 26071708 (Version 1)
Quarter: 2025Q4

REPORT INFORMATION
  Report Type: Spontaneous
  Country: US (occurrence: US)
  Receive Date: 20251120
  Receipt Date: 20251120
  Transmission Date: 20260118
  Serious: Yes (Hospitalization, Other)
  Sender: NOVO NORDISK
  Company Number: US-NOVOPROD-380600

PATIENT
  Age: 63 Year
  Sex: Female
  Weight: 81.633 kg

DRUGS (2)
  1. VICTOZA [Suspect]
     Active Substance: LIRAGLUTIDE
     Dosage: UNK (RESTARTED)
  2. VICTOZA [Suspect]
     Active Substance: LIRAGLUTIDE
     Indication: Type 2 diabetes mellitus
     Dosage: 1.2 MG, QD
     Route: 058
     Dates: end: 20130506

REACTIONS (4)
  - Surgery [Unknown]
  - Procedural complication [Unknown]
  - Pancreatitis [Recovered/Resolved]
  - Pancreatic enzymes increased [Unknown]

NARRATIVE: CASE EVENT DATE: 20130506
